FAERS Safety Report 4555708-4 (Version None)
Quarter: 2005Q1

REPORT INFORMATION
  Report Type: 
  Country: None (occurrence: None)
  Receive Date: 20050119
  Receipt Date: 20040811
  Transmission Date: 20050727
  Serious: Yes (Other)
  Sender: FDA-Public Use
  Company Number: US-BRISTOL-MYERS SQUIBB COMPANY-12666848

PATIENT
  Age: 64 Year
  Sex: Female

DRUGS (6)
  1. ESTRACE [Suspect]
     Indication: HORMONE REPLACEMENT THERAPY
     Dates: start: 19990601, end: 19990901
  2. ESTRADIOL [Suspect]
     Indication: HORMONE REPLACEMENT THERAPY
     Dates: start: 19990301, end: 20020901
  3. PREMARIN [Suspect]
     Indication: HORMONE REPLACEMENT THERAPY
     Dates: start: 19941101, end: 19961101
  4. PROVERA [Suspect]
     Indication: HORMONE REPLACEMENT THERAPY
     Dates: start: 19990601, end: 19990901
  5. PREMPRO [Suspect]
     Indication: HORMONE REPLACEMENT THERAPY
     Dates: start: 19961201, end: 19981101
  6. MEDROXYPROGESTERONE ACETATE [Suspect]
     Indication: HORMONE REPLACEMENT THERAPY
     Dosage: NOV-1996 TIL NOV-1996, MAR-1999 TIL SEP-1999 AND DEC-1999 UNTIL SEP-2002
     Dates: start: 19961101, end: 20020201

REACTIONS (5)
  - COLONIC OBSTRUCTION [None]
  - ENDOMETRIAL CANCER METASTATIC [None]
  - METASTASES TO PERITONEUM [None]
  - OVARIAN CANCER [None]
  - OVARIAN CANCER METASTATIC [None]
